FAERS Safety Report 24749320 (Version 1)
Quarter: 2024Q4

REPORT INFORMATION
  Report Type: Spontaneous
  Country: US (occurrence: US)
  Receive Date: 20241218
  Receipt Date: 20241218
  Transmission Date: 20250115
  Serious: No
  Sender: PFIZER
  Company Number: US-PFIZER INC-202400323853

PATIENT
  Age: 12 Year
  Sex: Male
  Weight: 29.03 kg

DRUGS (2)
  1. GENOTROPIN [Suspect]
     Active Substance: SOMATROPIN
     Dosage: 2MG UNDER THE SKIN 6 DAYS A WEEK
     Route: 058
  2. SINGULAIR [Concomitant]
     Active Substance: MONTELUKAST SODIUM
     Indication: Seasonal allergy
     Dosage: STANDARD DOSE FOR CHILD, BEEN TAKING IT FOR 3 OR 4 MONTHS
     Dates: start: 2024

REACTIONS (6)
  - Drug dose omission by device [Unknown]
  - Device breakage [Unknown]
  - Device leakage [Unknown]
  - Device issue [Unknown]
  - Liquid product physical issue [Unknown]
  - Poor quality device used [Unknown]

NARRATIVE: CASE EVENT DATE: 20241206
